FAERS Safety Report 5873557-1 (Version None)
Quarter: 2008Q3

REPORT INFORMATION
  Report Type: 
  Country: None (occurrence: None)
  Receive Date: 20080903
  Receipt Date: 20080822
  Transmission Date: 20090109
  Serious: Yes (Other)
  Sender: FDA-Public Use
  Company Number: 100#03#2008-04249

PATIENT
  Age: 82 Year
  Sex: Male

DRUGS (3)
  1. CEPHALEXIN [Suspect]
     Indication: URINARY TRACT INFECTION
     Dosage: 125 MG ORAL
     Route: 048
     Dates: start: 20071205, end: 20080407
  2. CLOPIXOL (ZUCLOPENTHIXOL ACETATE, ZUCLOPENTHIXOL DIHYDROCHLORIDE, ZUCL [Suspect]
     Indication: SCHIZOPHRENIA, PARANOID TYPE
     Dosage: 400 MG ONCE IN TWO WEEKS INTRAMUSCULAR
     Route: 030
     Dates: start: 19990827, end: 20080330
  3. OLANZAPINE [Concomitant]

REACTIONS (3)
  - ATRIOVENTRICULAR BLOCK FIRST DEGREE [None]
  - ELECTROCARDIOGRAM QT PROLONGED [None]
  - EXTRASYSTOLES [None]
